FAERS Safety Report 4373621-2 (Version None)
Quarter: 2004Q1

REPORT INFORMATION
  Report Type: 
  Country: None (occurrence: None)
  Receive Date: 20040305
  Receipt Date: 20031230
  Transmission Date: 20041129
  Serious: Yes (Other)
  Sender: FDA-Public Use
  Company Number: 2003UW17310

PATIENT
  Age: 76 Year
  Sex: Female
  Weight: 49.4421 kg

DRUGS (1)
  1. CRESTOR [Suspect]
     Indication: BLOOD CHOLESTEROL INCREASED
     Dosage: 10 MG PO
     Route: 048

REACTIONS (3)
  - CHILLS [None]
  - FEELING COLD [None]
  - NASAL CONGESTION [None]
